FAERS Safety Report 11629828 (Version 3)
Quarter: 2015Q4

REPORT INFORMATION
  Report Type: Spontaneous
  Country: US (occurrence: US)
  Receive Date: 20151014
  Receipt Date: 20151202
  Transmission Date: 20160304
  Serious: Yes (Other)
  Sender: FDA-Public Use
  Company Number: US-JNJFOC-20151004986

PATIENT
  Age: 34 Year
  Sex: Female
  Weight: 61.24 kg

DRUGS (5)
  1. METHOTREXATE [Concomitant]
     Active Substance: METHOTREXATE
     Route: 048
  2. FOLIC ACID. [Concomitant]
     Active Substance: FOLIC ACID
     Route: 065
  3. CIMZIA [Concomitant]
     Active Substance: CERTOLIZUMAB PEGOL
     Route: 048
  4. PREDNISONE. [Concomitant]
     Active Substance: PREDNISONE
     Route: 048
  5. STELARA [Suspect]
     Active Substance: USTEKINUMAB
     Indication: PSORIASIS
     Route: 058
     Dates: start: 20150121, end: 20150924

REACTIONS (8)
  - Abasia [Recovered/Resolved]
  - Psoriasis [Unknown]
  - Erythrodermic psoriasis [Not Recovered/Not Resolved]
  - Skin infection [Unknown]
  - Type IV hypersensitivity reaction [Unknown]
  - Heart rate increased [Unknown]
  - Dehydration [Unknown]
  - Pain [Unknown]

NARRATIVE: CASE EVENT DATE: 20151006
